FAERS Safety Report 7556343-6 (Version None)
Quarter: 2011Q2

REPORT INFORMATION
  Report Type: 
  Country: None (occurrence: None)
  Receive Date: 20110620
  Receipt Date: 20110607
  Transmission Date: 20111010
  Serious: No
  Sender: FDA-Public Use
  Company Number: US-ROXANE LABORATORIES, INC.-2011-RO-00836RO

PATIENT
  Sex: Female

DRUGS (1)
  1. AMLODIPINE [Suspect]

REACTIONS (2)
  - MUSCLE TWITCHING [None]
  - PALPITATIONS [None]
